FAERS Safety Report 16284260 (Version 2)
Quarter: 2021Q2

REPORT INFORMATION
  Report Type: Spontaneous
  Country: CN (occurrence: CN)
  Receive Date: 20190508
  Receipt Date: 20210625
  Transmission Date: 20210716
  Serious: Yes (Other)
  Sender: FDA-Public Use
  Company Number: CN-ROCHE-2311055

PATIENT
  Age: 67 Year
  Sex: Female

DRUGS (44)
  1. CAPECITABINE. [Suspect]
     Active Substance: CAPECITABINE
     Indication: METASTASES TO BONE
  2. TRASTUZUMAB. [Suspect]
     Active Substance: TRASTUZUMAB
     Indication: METASTASES TO LIVER
  3. CYCLOPHOSPHAMIDE. [Concomitant]
     Active Substance: CYCLOPHOSPHAMIDE
     Indication: METASTASES TO LYMPH NODES
  4. PACLITAXEL. [Concomitant]
     Active Substance: PACLITAXEL
     Indication: METASTASES TO LYMPH NODES
  5. EXEMESTANE. [Concomitant]
     Active Substance: EXEMESTANE
     Indication: METASTASES TO LYMPH NODES
  6. EXEMESTANE. [Concomitant]
     Active Substance: EXEMESTANE
     Indication: METASTASES TO LIVER
  7. LAPATINIB [Concomitant]
     Active Substance: LAPATINIB
     Indication: METASTASES TO BONE
  8. TRASTUZUMAB. [Suspect]
     Active Substance: TRASTUZUMAB
     Indication: BREAST CANCER
     Route: 065
     Dates: start: 201802, end: 201805
  9. TRASTUZUMAB. [Suspect]
     Active Substance: TRASTUZUMAB
     Indication: METASTASES TO LYMPH NODES
     Route: 065
     Dates: start: 20180526
  10. EPIRUBICIN [Concomitant]
     Active Substance: EPIRUBICIN
     Indication: METASTASES TO BONE
  11. LETROZOLE. [Concomitant]
     Active Substance: LETROZOLE
     Indication: METASTASES TO BONE
  12. PYROTINIB [Concomitant]
     Active Substance: PYROTINIB
     Indication: BREAST CANCER
     Route: 048
     Dates: start: 201903
  13. TRASTUZUMAB. [Suspect]
     Active Substance: TRASTUZUMAB
     Indication: METASTASES TO BONE
  14. CYCLOPHOSPHAMIDE. [Concomitant]
     Active Substance: CYCLOPHOSPHAMIDE
     Indication: METASTASES TO BONE
  15. LETROZOLE. [Concomitant]
     Active Substance: LETROZOLE
     Indication: BREAST CANCER
     Route: 048
     Dates: start: 201603, end: 20160301
  16. LETROZOLE. [Concomitant]
     Active Substance: LETROZOLE
     Indication: METASTASES TO LYMPH NODES
  17. EXEMESTANE. [Concomitant]
     Active Substance: EXEMESTANE
     Indication: BREAST CANCER
     Route: 048
     Dates: start: 201801, end: 20180101
  18. LAPATINIB [Concomitant]
     Active Substance: LAPATINIB
     Indication: METASTASES TO LIVER
  19. PYROTINIB [Concomitant]
     Active Substance: PYROTINIB
     Indication: METASTASES TO LIVER
  20. ZOLEDRONIC ACID [Concomitant]
     Active Substance: ZOLEDRONIC ACID
     Indication: METASTASES TO BONE
  21. VINORELBINE [Concomitant]
     Active Substance: VINORELBINE TARTRATE
     Indication: BREAST CANCER
     Dates: start: 201802, end: 201805
  22. VINORELBINE [Concomitant]
     Active Substance: VINORELBINE TARTRATE
     Indication: METASTASES TO BONE
  23. CAPECITABINE. [Suspect]
     Active Substance: CAPECITABINE
     Indication: METASTASES TO LYMPH NODES
  24. EPIRUBICIN [Concomitant]
     Active Substance: EPIRUBICIN
     Indication: METASTASES TO LYMPH NODES
  25. PACLITAXEL. [Concomitant]
     Active Substance: PACLITAXEL
     Indication: METASTASES TO BONE
  26. LETROZOLE. [Concomitant]
     Active Substance: LETROZOLE
     Indication: METASTASES TO LIVER
  27. EXEMESTANE. [Concomitant]
     Active Substance: EXEMESTANE
     Indication: METASTASES TO BONE
  28. LAPATINIB [Concomitant]
     Active Substance: LAPATINIB
     Indication: BREAST CANCER
     Route: 048
     Dates: start: 20180326
  29. ZOLEDRONIC ACID [Concomitant]
     Active Substance: ZOLEDRONIC ACID
     Indication: METASTASES TO LIVER
  30. VINORELBINE [Concomitant]
     Active Substance: VINORELBINE TARTRATE
     Indication: METASTASES TO LYMPH NODES
  31. CAPECITABINE. [Suspect]
     Active Substance: CAPECITABINE
     Indication: BREAST CANCER
     Route: 048
     Dates: start: 20170927
  32. CYCLOPHOSPHAMIDE. [Concomitant]
     Active Substance: CYCLOPHOSPHAMIDE
     Indication: BREAST CANCER
  33. PACLITAXEL. [Concomitant]
     Active Substance: PACLITAXEL
     Indication: METASTASES TO LIVER
  34. PYROTINIB [Concomitant]
     Active Substance: PYROTINIB
     Indication: METASTASES TO LYMPH NODES
  35. PYROTINIB [Concomitant]
     Active Substance: PYROTINIB
     Indication: METASTASES TO BONE
  36. ZOLEDRONIC ACID [Concomitant]
     Active Substance: ZOLEDRONIC ACID
     Indication: BREAST CANCER
     Dates: start: 20170927
  37. CAPECITABINE. [Suspect]
     Active Substance: CAPECITABINE
     Indication: METASTASES TO LIVER
  38. CYCLOPHOSPHAMIDE. [Concomitant]
     Active Substance: CYCLOPHOSPHAMIDE
     Indication: METASTASES TO LIVER
  39. PACLITAXEL. [Concomitant]
     Active Substance: PACLITAXEL
     Indication: BREAST CANCER
  40. LAPATINIB [Concomitant]
     Active Substance: LAPATINIB
     Indication: METASTASES TO LYMPH NODES
     Route: 048
  41. EPIRUBICIN [Concomitant]
     Active Substance: EPIRUBICIN
     Indication: BREAST CANCER
  42. EPIRUBICIN [Concomitant]
     Active Substance: EPIRUBICIN
     Indication: METASTASES TO LIVER
  43. ZOLEDRONIC ACID [Concomitant]
     Active Substance: ZOLEDRONIC ACID
     Indication: METASTASES TO LYMPH NODES
  44. VINORELBINE [Concomitant]
     Active Substance: VINORELBINE TARTRATE
     Indication: METASTASES TO LIVER

REACTIONS (2)
  - Diarrhoea [Unknown]
  - Lacunar infarction [Unknown]
